FAERS Safety Report 20517463 (Version 1)
Quarter: 2022Q1

REPORT INFORMATION
  Report Type: Spontaneous
  Country: US (occurrence: None)
  Receive Date: 20220224
  Receipt Date: 20220224
  Transmission Date: 20220424
  Serious: Yes (Hospitalization)
  Sender: FDA-Public Use
  Company Number: None

PATIENT
  Age: 75 Year
  Sex: Male

DRUGS (1)
  1. CAPECITABINE [Suspect]
     Active Substance: CAPECITABINE
     Dosage: 2300 MG BID ORAL?
     Route: 048
     Dates: start: 202112

REACTIONS (3)
  - Dehydration [None]
  - Electrolyte depletion [None]
  - Therapy interrupted [None]

NARRATIVE: CASE EVENT DATE: 20220210
